FAERS Safety Report 14761501 (Version 1)
Quarter: 2018Q2

REPORT INFORMATION
  Report Type: Spontaneous
  Country: US (occurrence: US)
  Receive Date: 20180416
  Receipt Date: 20180416
  Transmission Date: 20180711
  Serious: No
  Sender: FDA-Public Use
  Company Number: US-BION-006095

PATIENT
  Age: 70 Year
  Sex: Female
  Weight: 61 kg

DRUGS (1)
  1. ALEVE [Suspect]
     Active Substance: NAPROXEN SODIUM
     Indication: PAIN
     Route: 048
     Dates: start: 20170221, end: 20170221

REACTIONS (4)
  - Dysgeusia [Recovered/Resolved]
  - Product physical consistency issue [Unknown]
  - Poor quality drug administered [Unknown]
  - Product coating issue [Unknown]

NARRATIVE: CASE EVENT DATE: 20170221
